FAERS Safety Report 16611676 (Version 1)
Quarter: 2019Q3

REPORT INFORMATION
  Report Type: Spontaneous
  Country: GB (occurrence: GB)
  Receive Date: 20190722
  Receipt Date: 20190722
  Transmission Date: 20191004
  Serious: Yes (Other)
  Sender: FDA-Public Use
  Company Number: GB-MYLANLABS-2019M1067388

PATIENT
  Age: 53 Year
  Sex: Male
  Weight: 105 kg

DRUGS (10)
  1. DOXYCYCLINE. [Suspect]
     Active Substance: DOXYCYCLINE
     Indication: PRODUCT USED FOR UNKNOWN INDICATION
     Dosage: 100 MILLIGRAM, QD (TWO NOW THEN ONE DAILY)
     Route: 065
     Dates: start: 20190128
  2. SILDENAFIL. [Concomitant]
     Active Substance: SILDENAFIL
     Dosage: PRN
     Route: 065
     Dates: start: 20171219
  3. VENTOLIN [Concomitant]
     Active Substance: ALBUTEROL SULFATE
     Dosage: 2 DOSAGE FORM, PRN
     Route: 055
     Dates: start: 20170707
  4. FLUCONAZOLE. [Concomitant]
     Active Substance: FLUCONAZOLE
     Dosage: 1 DOSAGE FORM, BID (TAKE ONE STAT  AND IN  ONE WEEK IF NOT IMPROVED)
     Route: 065
     Dates: start: 20190128, end: 20190130
  5. AZITHROMYCIN ANHYDROUS. [Concomitant]
     Active Substance: AZITHROMYCIN ANHYDROUS
     Dosage: 1 DOSAGE FORM, QD
     Route: 065
     Dates: start: 20190125, end: 20190128
  6. RELVAR ELLIPTA                     /08236201/ [Concomitant]
     Active Substance: FLUTICASONE FUROATE\VILANTEROL TRIFENATATE
     Dosage: 1 DOSAGE FORM, QD
     Route: 055
     Dates: start: 20170707
  7. RAMIPRIL. [Concomitant]
     Active Substance: RAMIPRIL
     Dosage: 1 DOSAGE FORM, QD
     Route: 065
     Dates: start: 20170707
  8. PROCHLORPERAZINE. [Concomitant]
     Active Substance: PROCHLORPERAZINE
     Dosage: 1 DOSAGE FORM, PRN (THREE TIMES DAILY)
     Route: 065
     Dates: start: 20181129, end: 20181130
  9. MONTELUKAST [Concomitant]
     Active Substance: MONTELUKAST SODIUM
     Dosage: 1 DOSAGE FORM, QD (AT NIGHT)
     Route: 065
     Dates: start: 20170707
  10. INDAPAMIDE. [Concomitant]
     Active Substance: INDAPAMIDE
     Dosage: 1 DOSAGE FORM, QD (EACH MORNING)
     Route: 065
     Dates: start: 20170707

REACTIONS (6)
  - Nausea [Unknown]
  - Skin exfoliation [Unknown]
  - Oral candidiasis [Unknown]
  - Rash [Recovered/Resolved]
  - Malaise [Unknown]
  - Vomiting [Unknown]
